FAERS Safety Report 5752125-6 (Version None)
Quarter: 2008Q2

REPORT INFORMATION
  Report Type: 
  Country: None (occurrence: None)
  Receive Date: 20080529
  Receipt Date: 20070807
  Transmission Date: 20081010
  Serious: No
  Sender: FDA-Public Use
  Company Number: US-BAUSCH-2007BL002742

PATIENT
  Age: 55 Year
  Sex: Male

DRUGS (4)
  1. BRIMONIDINE TARTRATE [Suspect]
     Indication: GLAUCOMA
     Route: 047
     Dates: start: 20070117, end: 20070301
  2. BRIMONIDINE TARTRATE [Suspect]
     Route: 047
     Dates: start: 20070804, end: 20070804
  3. BRIMONIDINE TARTRATE [Suspect]
     Route: 047
     Dates: start: 20061101, end: 20070116
  4. ^UNSPECIFIED MEDICATIONS^ [Concomitant]

REACTIONS (2)
  - CONJUNCTIVITIS INFECTIVE [None]
  - POLYP [None]
